FAERS Safety Report 8237596-8 (Version None)
Quarter: 2012Q1

REPORT INFORMATION
  Report Type: 
  Country: None (occurrence: None)
  Receive Date: 20120327
  Receipt Date: 20120312
  Transmission Date: 20120608
  Serious: Yes (Death, Other)
  Sender: FDA-Public Use
  Company Number: PL-CELGENEUS-129-50794-12031364

PATIENT

DRUGS (1)
  1. VIDAZA [Suspect]
     Dosage: 75 MILLIGRAM/SQ. METER
     Route: 058
     Dates: start: 20090601, end: 20120301

REACTIONS (20)
  - SUDDEN CARDIAC DEATH [None]
  - DISEASE PROGRESSION [None]
  - TUBERCULOSIS [None]
  - NAUSEA [None]
  - DEATH [None]
  - PULMONARY MYCOSIS [None]
  - NEUTROPENIA [None]
  - THROMBOCYTOPENIA [None]
  - ISCHAEMIC STROKE [None]
  - RENAL FAILURE [None]
  - SKIN DISORDER [None]
  - GASTROINTESTINAL HAEMORRHAGE [None]
  - PNEUMONIA [None]
  - INFLAMMATION [None]
  - ANAEMIA [None]
  - SEPSIS [None]
  - DIARRHOEA [None]
  - VOMITING [None]
  - SEPTIC SHOCK [None]
  - ANGIOEDEMA [None]
